FAERS Safety Report 9522770 (Version 2)
Quarter: 2013Q4

REPORT INFORMATION
  Report Type: Spontaneous
  Country: NL (occurrence: NL)
  Receive Date: 20130913
  Receipt Date: 20131007
  Transmission Date: 20140711
  Serious: Yes (Hospitalization)
  Sender: FDA-Public Use
  Company Number: PHHY2013NL100747

PATIENT
  Age: 66 Year
  Sex: Female

DRUGS (5)
  1. AFINITOR [Suspect]
     Indication: BREAST CANCER
     Dates: start: 20130611
  2. FRAGMIN [Concomitant]
     Dosage: 10000 IU/ML, UNK
  3. FRAGMIN [Concomitant]
     Dosage: 10000 IU/ML, UNK
     Dates: start: 20130819
  4. OMEPRAZOLE [Concomitant]
     Dosage: 40 MG, UNK
     Route: 048
  5. EXEMESTANE [Concomitant]
     Dosage: 25 MG, UNK

REACTIONS (1)
  - Gastritis erosive [Unknown]
